FAERS Safety Report 21320199 (Version 2)
Quarter: 2022Q4

REPORT INFORMATION
  Report Type: Report from Study
  Country: US (occurrence: US)
  Receive Date: 20220911
  Receipt Date: 20221006
  Transmission Date: 20230112
  Serious: No
  Sender: FDA-Public Use
  Company Number: US-SA-SAC20220907000616

PATIENT
  Age: 64 Year
  Sex: Female

DRUGS (23)
  1. TERIFLUNOMIDE [Suspect]
     Active Substance: TERIFLUNOMIDE
     Indication: Product used for unknown indication
     Dosage: 14 MG, QD
     Route: 048
     Dates: start: 20220901
  2. TYLENOL [Concomitant]
     Active Substance: ACETAMINOPHEN
     Indication: Headache
  3. DIAZEPAM [Concomitant]
     Active Substance: DIAZEPAM
  4. PROPRANOLOL [Concomitant]
     Active Substance: PROPRANOLOL HYDROCHLORIDE
  5. LOSARTAN [Concomitant]
     Active Substance: LOSARTAN
  6. ATORVASTATIN [Concomitant]
     Active Substance: ATORVASTATIN
  7. DULOXETINE [Concomitant]
     Active Substance: DULOXETINE
  8. ESTRADIOL [Concomitant]
     Active Substance: ESTRADIOL
  9. LEVOTHYROXINE [Concomitant]
     Active Substance: LEVOTHYROXINE
  10. CELEBREX [Concomitant]
     Active Substance: CELECOXIB
  11. FLUTICASONE [Concomitant]
     Active Substance: FLUTICASONE
  12. DICLOFENAC [Concomitant]
     Active Substance: DICLOFENAC
  13. DICLOFENAC [Concomitant]
     Active Substance: DICLOFENAC
  14. AMBIEN [Concomitant]
     Active Substance: ZOLPIDEM TARTRATE
  15. ACETAMINOPHEN [Concomitant]
     Active Substance: ACETAMINOPHEN
  16. CALCIUM CARBONATE [Concomitant]
     Active Substance: CALCIUM CARBONATE
  17. ZINC [Concomitant]
     Active Substance: ZINC
  18. HYDROCODONE [Concomitant]
     Active Substance: HYDROCODONE
  19. MUCINEX [Concomitant]
     Active Substance: GUAIFENESIN
  20. CRANBERRY [Concomitant]
     Active Substance: CRANBERRY
  21. DIPHENHYDRAMINE [Concomitant]
     Active Substance: DIPHENHYDRAMINE
  22. DOCONEXENT [Concomitant]
     Active Substance: DOCONEXENT
  23. .ALPHA.-TOCOPHEROL [Concomitant]
     Active Substance: .ALPHA.-TOCOPHEROL

REACTIONS (1)
  - Headache [Not Recovered/Not Resolved]

NARRATIVE: CASE EVENT DATE: 20220901
